FAERS Safety Report 7283620-9 (Version None)
Quarter: 2011Q1

REPORT INFORMATION
  Report Type: 
  Country: None (occurrence: None)
  Receive Date: 20110209
  Receipt Date: 20110204
  Transmission Date: 20110831
  Serious: Yes (Hospitalization)
  Sender: FDA-Public Use
  Company Number: B0698102A

PATIENT
  Sex: Female
  Weight: 65 kg

DRUGS (7)
  1. ACTONEL [Concomitant]
     Dosage: 35MG PER DAY
     Route: 065
  2. BACTRIM [Suspect]
     Dosage: 400MG PER DAY
     Route: 048
     Dates: start: 20090601
  3. AUGMENTIN [Suspect]
     Indication: BRONCHIAL OBSTRUCTION
     Route: 048
     Dates: start: 20110106, end: 20110107
  4. AZITHROMYCIN [Concomitant]
     Dosage: 250MG PER DAY
     Route: 065
  5. TAVANIC [Suspect]
     Indication: BRONCHIAL OBSTRUCTION
     Dosage: 500MG TWICE PER DAY
     Route: 048
     Dates: start: 20110107, end: 20110112
  6. IMUREL [Suspect]
     Indication: WEGENER'S GRANULOMATOSIS
     Dosage: 50MG TWICE PER DAY
     Route: 048
     Dates: start: 20101001
  7. CORTANCYL [Concomitant]
     Dosage: 5MG PER DAY
     Route: 065

REACTIONS (3)
  - ASTHENIA [None]
  - PANCYTOPENIA [None]
  - VOMITING [None]
